FAERS Safety Report 7878569-4 (Version None)
Quarter: 2011Q4

REPORT INFORMATION
  Report Type: 
  Country: None (occurrence: None)
  Receive Date: 20111101
  Receipt Date: 20111028
  Transmission Date: 20120403
  Serious: Yes (Death, Hospitalization)
  Sender: FDA-Public Use
  Company Number: IT-BAYER-201026653GPV

PATIENT
  Age: 68 Year
  Sex: Male
  Weight: 94 kg

DRUGS (12)
  1. LISINOPRIL [Concomitant]
     Indication: HYPERTENSION
     Dosage: 5 MG (DAILY DOSE), ,
     Dates: end: 20100516
  2. GENERAL NUTRIENTS [Concomitant]
     Indication: SUPPLEMENTATION THERAPY
     Dates: end: 20100331
  3. RANIDIL [Concomitant]
     Indication: PROPHYLAXIS
     Dosage: 300 MG (DAILY DOSE), QD, ORAL
     Route: 048
     Dates: start: 20100517, end: 20100523
  4. PLACEBO [Suspect]
     Indication: HEPATIC NEOPLASM MALIGNANT
     Dosage: 150 MG, QD
     Route: 048
     Dates: start: 20100414, end: 20100504
  5. PROPRANOLOL [Concomitant]
     Indication: HYPERTENSION
     Dosage: 20 MG (DAILY DOSE), , ORAL
     Route: 048
     Dates: end: 20100529
  6. RANITIDINE HCL [Concomitant]
     Dosage: 300 MG (DAILY DOSE), , ORAL
     Route: 048
     Dates: start: 20100517, end: 20100523
  7. SORAFENIB (RAF KINASE INHIBITOR) [Suspect]
     Indication: HEPATIC NEOPLASM MALIGNANT
     Dosage: 400 MG, BID
     Route: 048
     Dates: start: 20100414, end: 20100504
  8. RANITIDINE HCL [Concomitant]
     Indication: PROPHYLAXIS
     Dosage: 150 MG (DAILY DOSE), , ORAL
     Route: 048
     Dates: start: 20100401, end: 20100516
  9. IOMERON-150 [Concomitant]
     Indication: SCAN WITH CONTRAST
     Dosage: 130 ML, UNK
     Dates: start: 20100408, end: 20100408
  10. PREFOLIC [Concomitant]
     Indication: ANAEMIA PROPHYLAXIS
     Dosage: 15 MG (DAILY DOSE), ,
     Dates: start: 20100510, end: 20100518
  11. OMEPRAZOLE [Concomitant]
     Indication: PROPHYLAXIS
     Dosage: 20 MG (DAILY DOSE), , ORAL
     Route: 048
     Dates: end: 20100331
  12. OMEPRAZOLE [Concomitant]
     Dosage: 20 MG (DAILY DOSE), ,
     Dates: end: 20100516

REACTIONS (7)
  - FATIGUE [None]
  - GASTROINTESTINAL ANGIODYSPLASIA [None]
  - WEIGHT DECREASED [None]
  - HEPATIC FAILURE [None]
  - ASCITES [None]
  - DIARRHOEA [None]
  - HAEMORRHAGIC EROSIVE GASTRITIS [None]
